FAERS Safety Report 6556309-9 (Version None)
Quarter: 2010Q1

REPORT INFORMATION
  Report Type: 
  Country: None (occurrence: None)
  Receive Date: 20100128
  Receipt Date: 20091113
  Transmission Date: 20100710
  Serious: No
  Sender: FDA-Public Use
  Company Number: US-TEVA-213254USA

PATIENT
  Sex: Male

DRUGS (10)
  1. COPAXONE [Suspect]
     Indication: MULTIPLE SCLEROSIS
     Route: 058
     Dates: start: 20091001, end: 20091001
  2. ATENOLOL [Concomitant]
  3. GEMFIBROZIL [Concomitant]
  4. TERAZOSIN HCL [Concomitant]
  5. LISINOPRIL [Concomitant]
  6. PARACETAMOL [Concomitant]
     Dosage: PRN
  7. LORATADINE [Concomitant]
     Dosage: PRN
  8. LOPERAMIDE [Concomitant]
     Dosage: PRN
  9. VICODIN [Concomitant]
     Dosage: PRN
  10. CLONAZEPAM [Concomitant]
     Dosage: PRN

REACTIONS (1)
  - PYREXIA [None]
